FAERS Safety Report 9372246 (Version 1)
Quarter: 2013Q2

REPORT INFORMATION
  Report Type: Report from Study
  Country: US (occurrence: US)
  Receive Date: 20130627
  Receipt Date: 20130627
  Transmission Date: 20140414
  Serious: Yes (Death)
  Sender: FDA-Public Use
  Company Number: US-MYLANLABS-2012S1017942

PATIENT
  Age: 64 Year
  Sex: Male

DRUGS (11)
  1. CLOZAPINE TABLETS [Suspect]
  2. KLONOPIN [Concomitant]
     Dosage: USING 1/2 OF A 0.5MG TABLET
  3. LOPRESSOR [Concomitant]
     Dosage: USING 1/2 OF A 50MG TABLET
  4. PRAVACHOL [Concomitant]
  5. PROSCAR [Concomitant]
  6. ABILIFY [Concomitant]
     Dosage: USING 1/2 OF A 5MG TABLET
  7. PLAVIX [Concomitant]
  8. LANOXIN [Concomitant]
  9. PRILOSEC [Concomitant]
  10. FLOMAX /01280302/ [Concomitant]
  11. FENOFIBRATE [Concomitant]

REACTIONS (1)
  - Death [Fatal]
